FAERS Safety Report 13949109 (Version 2)
Quarter: 2017Q4

REPORT INFORMATION
  Report Type: Spontaneous
  Country: JP (occurrence: JP)
  Receive Date: 20170908
  Receipt Date: 20171010
  Transmission Date: 20180320
  Serious: Yes (Other)
  Sender: FDA-Public Use
  Company Number: JP-009507513-1709JPN000511J

PATIENT
  Sex: Female

DRUGS (1)
  1. FOSAMAC TABLETS 35MG [Suspect]
     Active Substance: ALENDRONATE SODIUM
     Dosage: UNK
     Route: 048

REACTIONS (1)
  - Coronary artery stenosis [Unknown]
